FAERS Safety Report 18466423 (Version 5)
Quarter: 2021Q3

REPORT INFORMATION
  Report Type: Report from Study
  Country: FR (occurrence: FR)
  Receive Date: 20201104
  Receipt Date: 20210923
  Transmission Date: 20211014
  Serious: Yes (Hospitalization)
  Sender: FDA-Public Use
  Company Number: FR-ROCHE-2701212

PATIENT
  Age: 72 Year
  Sex: Male
  Weight: 60 kg

DRUGS (4)
  1. ATEZOLIZUMAB. [Suspect]
     Active Substance: ATEZOLIZUMAB
     Indication: BLADDER CANCER
     Dosage: DATE OF LAST DOSE OF ATEZOLIZUMAB: 01/OCT/2020
     Route: 042
     Dates: start: 20200305
  2. SILODYX [Concomitant]
     Active Substance: SILODOSIN
     Indication: BENIGN PROSTATIC HYPERPLASIA
     Route: 048
     Dates: start: 20200210
  3. BACILLUS CALMETTE?GUERIN (BCG) VACCINE [Suspect]
     Active Substance: BCG VACCINE
     Indication: BLADDER CANCER
     Dosage: DATE OF LAST DOSE OF BCG : 15/OCT/2020
     Route: 043
     Dates: start: 20200305
  4. PREDNISONE. [Concomitant]
     Active Substance: PREDNISONE
     Route: 048
     Dates: start: 20201112

REACTIONS (4)
  - Pneumonia [Recovered/Resolved]
  - Vascular rupture [Recovered/Resolved]
  - Chronic obstructive pulmonary disease [Recovered/Resolved]
  - Nephrolithiasis [Recovered/Resolved]

NARRATIVE: CASE EVENT DATE: 20201016
